FAERS Safety Report 5174290-4 (Version None)
Quarter: 2006Q4

REPORT INFORMATION
  Report Type: 
  Country: None (occurrence: None)
  Receive Date: 20061206
  Receipt Date: 20061128
  Transmission Date: 20070319
  Serious: Yes (Death)
  Sender: FDA-Public Use
  Company Number: S06-USA-05038-01

PATIENT
  Age: 40 Year
  Sex: Male

DRUGS (5)
  1. LEXAPRO [Suspect]
     Indication: ANXIETY
     Dosage: 10 MG QD PO
     Route: 048
     Dates: start: 20031022, end: 20031026
  2. LEXAPRO [Suspect]
     Indication: DEPRESSION
     Dosage: 10 MG QD PO
     Route: 048
     Dates: start: 20031022, end: 20031026
  3. LEXAPRO [Suspect]
     Indication: STRESS
     Dosage: 10 MG QD PO
     Route: 048
     Dates: start: 20031022, end: 20031026
  4. XANAX [Concomitant]
  5. SERZONE [Concomitant]

REACTIONS (12)
  - AKATHISIA [None]
  - ASTHENIA [None]
  - COMPLETED SUICIDE [None]
  - FEAR [None]
  - FEELING OF DESPAIR [None]
  - HYPERHIDROSIS [None]
  - INJURY ASPHYXIATION [None]
  - NERVOUSNESS [None]
  - RESTLESSNESS [None]
  - SUICIDAL IDEATION [None]
  - TEARFULNESS [None]
  - TREMOR [None]
